FAERS Safety Report 7588954 (Version 2)
Quarter: 2013Q3

REPORT INFORMATION
  Report Type: Spontaneous
  Country: TR (occurrence: None)
  Receive Date: 20100830
  Receipt Date: 20130715
  Transmission Date: 20140515
  Serious: Yes (Life-Threatening, Hospitalization)
  Sender: FDA-Public Use
  Company Number: AUR-APU-2010-02104

PATIENT
  Age: 40 Year
  Sex: Male

DRUGS (1)
  1. CEFUROXIME [Suspect]
     Indication: PRODUCT USED FOR UNKNOWN INDICATION
     Dosage: 500MG - ORAL
     Route: 048

REACTIONS (4)
  - Chest pain [None]
  - Myocardial ischaemia [None]
  - Arteriospasm coronary [None]
  - Kounis syndrome [None]
